FAERS Safety Report 14331147 (Version 1)
Quarter: 2017Q4

REPORT INFORMATION
  Report Type: Spontaneous
  Country: US (occurrence: US)
  Receive Date: 20171228
  Receipt Date: 20171228
  Transmission Date: 20180321
  Serious: No
  Sender: FDA-Public Use
  Company Number: US-GILEAD-2017-0311859

PATIENT
  Sex: Female

DRUGS (1)
  1. EPCLUSA [Suspect]
     Active Substance: SOFOSBUVIR\VELPATASVIR
     Indication: PRODUCT USED FOR UNKNOWN INDICATION
     Dosage: UNK
     Route: 065
     Dates: start: 20171127

REACTIONS (2)
  - Rash pruritic [Not Recovered/Not Resolved]
  - Excoriation [Not Recovered/Not Resolved]

NARRATIVE: CASE EVENT DATE: 20171204
